FAERS Safety Report 4371819-0 (Version None)
Quarter: 2004Q2

REPORT INFORMATION
  Report Type: 
  Country: None (occurrence: None)
  Receive Date: 20040601
  Receipt Date: 20040517
  Transmission Date: 20050107
  Serious: Yes (Hospitalization, Disabling, Other)
  Sender: FDA-Public Use
  Company Number: FABR-10587

PATIENT
  Age: 39 Year
  Sex: Male
  Weight: 80 kg

DRUGS (9)
  1. FABRAZYME [Suspect]
     Indication: FABRY'S DISEASE
     Dosage: 105 MG Q2WKS IV
     Route: 042
     Dates: start: 20040308
  2. FABRAZYME [Suspect]
     Indication: FABRY'S DISEASE
     Dosage: 70 MG Q2WKS IV
     Route: 042
     Dates: start: 20030707, end: 20040308
  3. TEGRETOL [Concomitant]
  4. ALTACE [Concomitant]
  5. LIPITOR [Concomitant]
  6. CIPRO [Concomitant]
  7. LASIX [Concomitant]
  8. CARTIA XT [Concomitant]
  9. FOLTX [Concomitant]

REACTIONS (6)
  - CONDITION AGGRAVATED [None]
  - DEHYDRATION [None]
  - FABRY'S DISEASE [None]
  - HAEMODIALYSIS [None]
  - RENAL FAILURE CHRONIC [None]
  - VOMITING [None]
